FAERS Safety Report 10963235 (Version 1)
Quarter: 2015Q1

REPORT INFORMATION
  Report Type: Spontaneous
  Country: US (occurrence: US)
  Receive Date: 20150327
  Receipt Date: 20150327
  Transmission Date: 20150721
  Serious: No
  Sender: FDA-Public Use
  Company Number: US-ASTRAZENECA-2008BM04600

PATIENT
  Age: 669 Month
  Sex: Female
  Weight: 86.2 kg

DRUGS (14)
  1. BYETTA [Suspect]
     Active Substance: EXENATIDE
     Indication: TYPE 2 DIABETES MELLITUS
     Route: 058
     Dates: start: 2005
  2. CRESTOR [Suspect]
     Active Substance: ROSUVASTATIN CALCIUM
     Indication: BLOOD CHOLESTEROL INCREASED
     Route: 048
     Dates: start: 2010
  3. RINITADINE [Concomitant]
     Route: 048
  4. FARXIGA [Suspect]
     Active Substance: DAPAGLIFLOZIN PROPANEDIOL
     Indication: TYPE 2 DIABETES MELLITUS
     Route: 048
     Dates: start: 201502
  5. LISINOPRIL. [Suspect]
     Active Substance: LISINOPRIL
     Route: 048
  6. BYETTA [Suspect]
     Active Substance: EXENATIDE
     Indication: TYPE 2 DIABETES MELLITUS
     Route: 058
     Dates: end: 2006
  7. LEVEMIR [Concomitant]
     Active Substance: INSULIN DETEMIR
     Indication: DIABETES MELLITUS
     Route: 040
  8. FIRISMIDE [Concomitant]
     Route: 048
  9. BYETTA [Suspect]
     Active Substance: EXENATIDE
     Indication: TYPE 2 DIABETES MELLITUS
     Route: 058
     Dates: start: 200802, end: 20080323
  10. FARXIGA [Suspect]
     Active Substance: DAPAGLIFLOZIN PROPANEDIOL
     Indication: TYPE 2 DIABETES MELLITUS
     Route: 048
     Dates: start: 201411, end: 201502
  11. GLIMEPIRIDE. [Concomitant]
     Active Substance: GLIMEPIRIDE
     Indication: TYPE 2 DIABETES MELLITUS
     Dosage: UNK
     Route: 048
  12. JANUMET XR [Concomitant]
     Active Substance: METFORMIN HYDROCHLORIDE\SITAGLIPTIN PHOSPHATE
     Indication: DIABETES MELLITUS
     Route: 048
  13. BYETTA [Suspect]
     Active Substance: EXENATIDE
     Indication: TYPE 2 DIABETES MELLITUS
     Route: 058
     Dates: start: 2008
  14. BYETTA [Suspect]
     Active Substance: EXENATIDE
     Indication: TYPE 2 DIABETES MELLITUS
     Route: 058
     Dates: start: 20080324

REACTIONS (17)
  - Injection site bruising [Not Recovered/Not Resolved]
  - Swelling face [Recovered/Resolved with Sequelae]
  - Facial pain [Recovered/Resolved]
  - Rhinorrhoea [Unknown]
  - Injection site pain [Not Recovered/Not Resolved]
  - Palatal swelling [Recovered/Resolved]
  - Injection site haemorrhage [Not Recovered/Not Resolved]
  - Gingival swelling [Recovered/Resolved]
  - Toothache [Recovered/Resolved]
  - Injection site rash [Not Recovered/Not Resolved]
  - Nausea [Unknown]
  - Viral sinusitis [Unknown]
  - Injection site urticaria [Not Recovered/Not Resolved]
  - Type 2 diabetes mellitus [Unknown]
  - Injection site nodule [Not Recovered/Not Resolved]
  - Enlarged uvula [Recovered/Resolved]
  - Sinusitis [Unknown]

NARRATIVE: CASE EVENT DATE: 2005
